FAERS Safety Report 5061952-2 (Version None)
Quarter: 2006Q3

REPORT INFORMATION
  Report Type: 
  Country: None (occurrence: None)
  Receive Date: 20060721
  Receipt Date: 20060717
  Transmission Date: 20061208
  Serious: Yes (Hospitalization)
  Sender: FDA-Public Use
  Company Number: PERC20060048

PATIENT
  Age: 36 Year
  Sex: Female
  Weight: 54.5 kg

DRUGS (4)
  1. PERCOCET [Suspect]
     Indication: PAIN
     Dosage: 1 TAB BID PO
     Route: 048
  2. PROMETRIUM [Suspect]
     Indication: MENSTRUAL DISORDER
     Dosage: 200MG DAILY PO
     Route: 048
     Dates: start: 20060601, end: 20060602
  3. DILAUDID [Suspect]
     Indication: PAIN
     Dosage: UNK DAILY UNK
  4. XANAX [Suspect]
     Indication: ANXIETY DISORDER
     Dosage: 0.5MG TID PO
     Route: 048

REACTIONS (3)
  - DIZZINESS [None]
  - LOSS OF CONSCIOUSNESS [None]
  - THERAPY NON-RESPONDER [None]
